FAERS Safety Report 5751865-2 (Version None)
Quarter: 2008Q2

REPORT INFORMATION
  Report Type: 
  Country: None (occurrence: None)
  Receive Date: 20080527
  Receipt Date: 20080507
  Transmission Date: 20081010
  Serious: Yes (Hospitalization)
  Sender: FDA-Public Use
  Company Number: 2008AL004103

PATIENT
  Age: 84 Year
  Sex: Male
  Weight: 65.7716 kg

DRUGS (4)
  1. DIGOXIN [Suspect]
     Indication: CARDIAC DISORDER
     Dosage: DAILY PO
     Route: 048
  2. CARAFATE [Concomitant]
  3. COREG [Concomitant]
  4. LISINOPRIL [Concomitant]

REACTIONS (5)
  - FATIGUE [None]
  - HYPOAESTHESIA [None]
  - LETHARGY [None]
  - RENAL FAILURE [None]
  - THERAPEUTIC AGENT TOXICITY [None]
